FAERS Safety Report 9330894 (Version 1)
Quarter: 2013Q2

REPORT INFORMATION
  Report Type: Spontaneous
  Country: US (occurrence: US)
  Receive Date: 20130605
  Receipt Date: 20130605
  Transmission Date: 20140414
  Serious: No
  Sender: FDA-Public Use
  Company Number: US-TEVA-409690USA

PATIENT
  Age: 25 Year
  Sex: Female
  Weight: 113.05 kg

DRUGS (3)
  1. PLAN B ONE-STEP [Suspect]
     Indication: POST COITAL CONTRACEPTION
     Dosage: 1.5 MILLIGRAM DAILY;
     Route: 048
     Dates: start: 20130529, end: 20130529
  2. MULTIVITAMIN [Concomitant]
     Indication: SUPPLEMENTATION THERAPY
  3. IRON [Concomitant]
     Indication: IRON DEFICIENCY

REACTIONS (4)
  - Abdominal distension [Recovered/Resolved]
  - Diarrhoea [Not Recovered/Not Resolved]
  - Fatigue [Recovered/Resolved]
  - Nausea [Not Recovered/Not Resolved]
